FAERS Safety Report 16742071 (Version 1)
Quarter: 2019Q3

REPORT INFORMATION
  Report Type: Spontaneous
  Country: RO (occurrence: RO)
  Receive Date: 20190826
  Receipt Date: 20190826
  Transmission Date: 20191005
  Serious: Yes (Other)
  Sender: FDA-Public Use
  Company Number: RO-TEVA-2019-RO-1096689

PATIENT
  Age: 37 Year
  Sex: Female
  Weight: 53 kg

DRUGS (8)
  1. METHOTREXATE. [Suspect]
     Active Substance: METHOTREXATE
     Dosage: 10 MG PER WEEK
     Route: 058
  2. CIMZIA [Suspect]
     Active Substance: CERTOLIZUMAB PEGOL
     Indication: RHEUMATOID ARTHRITIS
     Dosage: 200 MILLIGRAM FOR EVERY 2 WEEKS
     Route: 058
     Dates: start: 201208, end: 20130227
  3. ALPHA D3 [Concomitant]
     Active Substance: ALFACALCIDOL
     Dosage: 1MCG/DAY
     Route: 048
     Dates: start: 200909
  4. METHOTREXATE. [Suspect]
     Active Substance: METHOTREXATE
     Indication: RHEUMATOID ARTHRITIS
     Dosage: 15 MILLIGRAM FOR EVERY 1 WEEKS
     Route: 058
     Dates: start: 199504
  5. BONVIVA [Concomitant]
     Active Substance: IBANDRONATE SODIUM
     Indication: OSTEOPOROSIS
     Dosage: 150 MG, 1 TABLET/ MONTH
  6. ALPHA D3 [Concomitant]
     Active Substance: ALFACALCIDOL
     Dosage: 0.5 MG, 1 TABLET/DAY
  7. FOLIC ACID. [Concomitant]
     Active Substance: FOLIC ACID
     Dosage: 5 MILLIGRAM FOR EVERY 1 WEEK
  8. BONVIVA [Concomitant]
     Active Substance: IBANDRONATE SODIUM
     Indication: OSTEOPOROSIS
     Dosage: 3 MILLIGRAM FOR EVERY 3 MONTHS
     Route: 042
     Dates: start: 200909

REACTIONS (2)
  - Maternal exposure during pregnancy [Recovered/Resolved]
  - Abortion induced [Unknown]

NARRATIVE: CASE EVENT DATE: 20130201
